FAERS Safety Report 5897431-X (Version None)
Quarter: 2008Q3

REPORT INFORMATION
  Report Type: 
  Country: None (occurrence: None)
  Receive Date: 20080925
  Receipt Date: 20080915
  Transmission Date: 20090109
  Serious: Yes (Hospitalization)
  Sender: FDA-Public Use
  Company Number: US-WYE-H06010108

PATIENT
  Sex: Female

DRUGS (3)
  1. PRISTIQ [Suspect]
     Indication: DEPRESSION
     Route: 048
     Dates: start: 20080909, end: 20080912
  2. LEXAPRO [Concomitant]
     Indication: DEPRESSION
     Dosage: UNKNOWN DOSE DAILY
     Route: 048
     Dates: end: 20080909
  3. LEXAPRO [Concomitant]
     Indication: ANXIETY

REACTIONS (2)
  - DYSKINESIA [None]
  - PARAESTHESIA [None]
